FAERS Safety Report 7767831-1 (Version None)
Quarter: 2011Q3

REPORT INFORMATION
  Report Type: 
  Country: None (occurrence: None)
  Receive Date: 20110922
  Receipt Date: 20110509
  Transmission Date: 20111222
  Serious: No
  Sender: FDA-Public Use
  Company Number: US-ASTRAZENECA-2011SE27110

PATIENT
  Age: 30 Year
  Sex: Male
  Weight: 70.3 kg

DRUGS (1)
  1. SEROQUEL [Suspect]
     Indication: BIPOLAR DISORDER
     Route: 048
     Dates: start: 20030101, end: 20110506

REACTIONS (4)
  - BIPOLAR DISORDER [None]
  - DRUG DOSE OMISSION [None]
  - MUSCLE SPASMS [None]
  - INSOMNIA [None]
